FAERS Safety Report 8494089-0 (Version None)
Quarter: 2012Q2

REPORT INFORMATION
  Report Type: 
  Country: None (occurrence: None)
  Receive Date: 20120629
  Receipt Date: 20120629
  Transmission Date: 20120825
  Serious: Yes (Hospitalization)
  Sender: FDA-Public Use
  Company Number: None

PATIENT
  Sex: Female

DRUGS (1)
  1. HUMIRA [Suspect]
     Indication: RHEUMATOID ARTHRITIS
     Dosage: 40 MG Q 2WEEKS SUBCUTANEOUS
     Route: 058
     Dates: start: 20120124, end: 20120628

REACTIONS (2)
  - PAIN [None]
  - KIDNEY INFECTION [None]
